FAERS Safety Report 8389208-0 (Version None)
Quarter: 2012Q2

REPORT INFORMATION
  Report Type: 
  Country: None (occurrence: None)
  Receive Date: 20120528
  Receipt Date: 20120514
  Transmission Date: 20120825
  Serious: Yes (Hospitalization, Other)
  Sender: FDA-Public Use
  Company Number: US-RANBAXY-2012RR-56537

PATIENT
  Sex: Female

DRUGS (24)
  1. XANAX [Suspect]
     Indication: PRODUCT USED FOR UNKNOWN INDICATION
     Dosage: 0.5 DF/DAY
     Route: 065
  2. AVAPRO [Suspect]
     Indication: HYPERTENSION
     Route: 065
  3. NORVASC [Suspect]
     Dosage: 5 MG/DAILY
     Route: 048
     Dates: start: 19970101
  4. CARDIZEM [Suspect]
     Indication: PRODUCT USED FOR UNKNOWN INDICATION
     Route: 065
  5. LIDOCAINE [Suspect]
     Indication: ANAESTHESIA
     Dosage: UNK
     Route: 065
     Dates: start: 20100513, end: 20100513
  6. BYSTOLIC [Suspect]
     Indication: PRODUCT USED FOR UNKNOWN INDICATION
     Route: 065
  7. DIOVAN [Suspect]
     Indication: PRODUCT USED FOR UNKNOWN INDICATION
     Route: 065
  8. LISINOPRIL [Suspect]
     Indication: PRODUCT USED FOR UNKNOWN INDICATION
     Route: 065
  9. BENICAR [Suspect]
     Indication: HYPERTENSION
     Dosage: UNK
     Route: 048
     Dates: start: 20070101
  10. NORVASC [Suspect]
     Indication: HYPERTENSION
     Dosage: 2.5 MG/DAILY
     Route: 048
     Dates: start: 19950101
  11. BACTRIM [Suspect]
     Indication: PRODUCT USED FOR UNKNOWN INDICATION
     Route: 065
  12. LEVOTHYROXINE SODIUM [Concomitant]
     Indication: PRODUCT USED FOR UNKNOWN INDICATION
     Route: 065
  13. FUROSEMIDE [Suspect]
     Indication: PRODUCT USED FOR UNKNOWN INDICATION
     Route: 065
  14. LOSARTAN POTASSIUM [Suspect]
     Indication: PRODUCT USED FOR UNKNOWN INDICATION
     Route: 065
  15. HYDROCHLOROTHIAZIDE [Suspect]
     Indication: PRODUCT USED FOR UNKNOWN INDICATION
     Route: 065
  16. DILANTIN [Suspect]
     Indication: PRODUCT USED FOR UNKNOWN INDICATION
     Dosage: UNK
     Route: 065
     Dates: start: 19960101
  17. ATACAND [Suspect]
     Indication: PRODUCT USED FOR UNKNOWN INDICATION
     Dosage: 32 MG, UNK
     Route: 065
  18. NORVASC [Suspect]
     Dosage: 5 MG, BID
     Route: 048
     Dates: start: 20100101
  19. CIPROFLOXACIN HCL [Suspect]
     Indication: PRODUCT USED FOR UNKNOWN INDICATION
     Route: 065
  20. CLONIDINE [Concomitant]
     Indication: PRODUCT USED FOR UNKNOWN INDICATION
     Route: 065
  21. LEVAQUIN [Suspect]
     Indication: PRODUCT USED FOR UNKNOWN INDICATION
     Route: 065
  22. DEPAKOTE [Suspect]
     Indication: CONVULSION
     Dosage: UNK
     Route: 065
     Dates: start: 19960101
  23. MACROBID [Suspect]
     Indication: PRODUCT USED FOR UNKNOWN INDICATION
     Route: 065
  24. REGLAN [Suspect]
     Indication: PRODUCT USED FOR UNKNOWN INDICATION
     Route: 065

REACTIONS (12)
  - CYSTITIS [None]
  - WEIGHT DECREASED [None]
  - BURNING SENSATION [None]
  - PALPITATIONS [None]
  - ARTERIOSCLEROSIS CORONARY ARTERY [None]
  - ABDOMINAL DISTENSION [None]
  - BLOOD PRESSURE INCREASED [None]
  - CHOLECYSTECTOMY [None]
  - INGROWING NAIL [None]
  - LOSS OF CONSCIOUSNESS [None]
  - TOE OPERATION [None]
  - BLOOD COUNT ABNORMAL [None]
